FAERS Safety Report 15805421 (Version 1)
Quarter: 2019Q1

REPORT INFORMATION
  Report Type: Report from Study
  Country: US (occurrence: US)
  Receive Date: 20190110
  Receipt Date: 20190110
  Transmission Date: 20190417
  Serious: Yes (Death)
  Sender: FDA-Public Use
  Company Number: US-TEVA-2019-US-994603

PATIENT
  Age: 53 Year
  Sex: Male

DRUGS (5)
  1. METHAMPHETAMINE [Suspect]
     Active Substance: METHAMPHETAMINE
     Route: 065
  2. MORPHINE [Concomitant]
     Active Substance: MORPHINE
     Route: 065
  3. DIPHENHYDRAMINE. [Suspect]
     Active Substance: DIPHENHYDRAMINE
     Route: 065
  4. FLUOXETINE [Suspect]
     Active Substance: FLUOXETINE HYDROCHLORIDE
     Route: 065
  5. FENTANYL. [Suspect]
     Active Substance: FENTANYL
     Indication: PRODUCT USED FOR UNKNOWN INDICATION
     Route: 065

REACTIONS (3)
  - Pulmonary oedema [Fatal]
  - Brain injury [Fatal]
  - Toxicity to various agents [Fatal]
